FAERS Safety Report 4393130-4 (Version None)
Quarter: 2004Q3

REPORT INFORMATION
  Report Type: 
  Country: None (occurrence: None)
  Receive Date: 20040702
  Receipt Date: 20040611
  Transmission Date: 20050211
  Serious: Yes (Hospitalization)
  Sender: FDA-Public Use
  Company Number: AU-JNJFOC-20040603704

PATIENT
  Sex: Male

DRUGS (1)
  1. DURAGESIC [Suspect]
     Indication: CANCER PAIN
     Dosage: 50 UG/HR, TRANSDERMAL
     Route: 062

REACTIONS (2)
  - DRUG INEFFECTIVE [None]
  - INADEQUATE ANALGESIA [None]
